FAERS Safety Report 12933891 (Version 3)
Quarter: 2017Q2

REPORT INFORMATION
  Report Type: Report from Study
  Country: LV (occurrence: LV)
  Receive Date: 20161111
  Receipt Date: 20170511
  Transmission Date: 20170830
  Serious: Yes (Hospitalization, Other)
  Sender: FDA-Public Use
  Company Number: PHHO2016LV016179

PATIENT
  Age: 31 Year
  Sex: Female
  Weight: 79 kg

DRUGS (2)
  1. AIN457 [Suspect]
     Active Substance: SECUKINUMAB
     Indication: PSORIASIS
     Dosage: CODE NOT BROKEN
     Route: 058
     Dates: start: 20120127, end: 20121228
  2. AIN457 [Suspect]
     Active Substance: SECUKINUMAB
     Dosage: CODE NOT BROKEN
     Route: 058
     Dates: start: 20130125, end: 20161004

REACTIONS (5)
  - Acute psychosis [Recovering/Resolving]
  - Multiple organ dysfunction syndrome [Recovered/Resolved]
  - Ileus paralytic [Recovered/Resolved]
  - Tick-borne viral encephalitis [Recovered/Resolved]
  - Sepsis [Recovered/Resolved]

NARRATIVE: CASE EVENT DATE: 20160926
